FAERS Safety Report 8206402-X (Version None)
Quarter: 2012Q1

REPORT INFORMATION
  Report Type: 
  Country: None (occurrence: None)
  Receive Date: 20120313
  Receipt Date: 20120307
  Transmission Date: 20120608
  Serious: Yes (Other)
  Sender: FDA-Public Use
  Company Number: PHEH2012US005297

PATIENT
  Sex: Male

DRUGS (1)
  1. STALEVO 100 [Suspect]
     Dosage: 150 MG, UNK

REACTIONS (4)
  - MALAISE [None]
  - PARKINSON'S DISEASE [None]
  - PULMONARY FIBROSIS [None]
  - MYOCARDIAL INFARCTION [None]
